FAERS Safety Report 7373131-4 (Version None)
Quarter: 2011Q1

REPORT INFORMATION
  Report Type: 
  Country: None (occurrence: None)
  Receive Date: 20110316
  Receipt Date: 20110303
  Transmission Date: 20110831
  Serious: Yes (Life-Threatening)
  Sender: FDA-Public Use
  Company Number: DKLU1063961

PATIENT
  Age: 2 Year
  Sex: Male

DRUGS (2)
  1. VINCRISTINE [Concomitant]
  2. COSMEGEN [Suspect]
     Indication: NEPHROBLASTOMA
     Dosage: 0.8 MG, MILLIGRAM(S), 1 IN 2 WK, INTRAVENOUS (NOT OTHERWISE SPECIFIED)
     Route: 042
     Dates: start: 20100426, end: 20100524

REACTIONS (11)
  - HEPATOMEGALY [None]
  - ASTHENIA [None]
  - PLATELET COUNT DECREASED [None]
  - ASCITES [None]
  - SOMNOLENCE [None]
  - MUSCLE ATROPHY [None]
  - HEART RATE INCREASED [None]
  - EYELID PTOSIS [None]
  - DECREASED APPETITE [None]
  - HAEMOGLOBIN DECREASED [None]
  - RESPIRATORY RATE INCREASED [None]
